FAERS Safety Report 23504146 (Version 1)
Quarter: 2024Q1

REPORT INFORMATION
  Report Type: Spontaneous
  Country: US (occurrence: None)
  Receive Date: 20240208
  Receipt Date: 20240208
  Transmission Date: 20240409
  Serious: Yes (Death)
  Sender: FDA-Public Use
  Company Number: None

PATIENT
  Sex: Female

DRUGS (11)
  1. AMBRISENTAN [Suspect]
     Active Substance: AMBRISENTAN
     Indication: Pulmonary arterial hypertension
     Dosage: FREQUENCY : DAILY;?
     Route: 048
  2. IRON [Concomitant]
     Active Substance: IRON
  3. MECLIZINE HYDROCHLORIDE [Concomitant]
     Active Substance: MECLIZINE HYDROCHLORIDE
  4. ASPIRIN [Concomitant]
     Active Substance: ASPIRIN
  5. GERITOL TONIC [Concomitant]
  6. LASIX [Concomitant]
     Active Substance: FUROSEMIDE
  7. VITAMINS + MINERALS [Concomitant]
  8. ELIQUIS [Concomitant]
     Active Substance: APIXABAN
  9. AZITHROMYCIN [Concomitant]
     Active Substance: AZITHROMYCIN
  10. BENZONATATE [Concomitant]
     Active Substance: BENZONATATE
  11. ALYQ [Concomitant]
     Active Substance: TADALAFIL

REACTIONS (1)
  - Death [None]
